FAERS Safety Report 12976733 (Version 3)
Quarter: 2017Q1

REPORT INFORMATION
  Report Type: Spontaneous
  Country: JP (occurrence: JP)
  Receive Date: 20161128
  Receipt Date: 20170213
  Transmission Date: 20170428
  Serious: Yes (Other)
  Sender: FDA-Public Use
  Company Number: PHJP2016JP033490

PATIENT
  Age: 47 Year
  Sex: Female
  Weight: 63 kg

DRUGS (10)
  1. LOCOID [Concomitant]
     Active Substance: HYDROCORTISONE BUTYRATE
     Indication: PSORIASIS
     Dosage: 0.3 G, BID
     Route: 061
     Dates: start: 20160831
  2. NERISONA [Concomitant]
     Active Substance: DIFLUCORTOLONE VALERATE
     Indication: PSORIASIS
     Dosage: 0.3 G, BID
     Route: 061
     Dates: start: 20160831, end: 20160928
  3. ALLEGRA [Concomitant]
     Active Substance: FEXOFENADINE HYDROCHLORIDE
     Indication: PRURITUS
     Dosage: 60 MG, BID
     Route: 048
     Dates: start: 20150902
  4. DOVOBET [Concomitant]
     Active Substance: BETAMETHASONE\CALCIPOTRIENE
     Indication: PSORIASIS
     Dosage: 3 G, QD
     Route: 061
     Dates: start: 20150902
  5. ANTEBATE [Concomitant]
     Active Substance: BETAMETHASONE DIPROPIONATE
     Indication: PSORIASIS
     Dosage: 0.5 G, BID
     Route: 061
     Dates: start: 20150817
  6. SATOSALBE [Concomitant]
     Active Substance: ZINC OXIDE
     Indication: PSORIASIS
     Dosage: 0.3 G, QD OR BID
     Route: 061
     Dates: start: 20160831, end: 20160928
  7. LOXOPROFEN [Concomitant]
     Active Substance: LOXOPROFEN
     Indication: BIOPSY SKIN
     Dosage: 60 MG, PRN
     Route: 048
     Dates: start: 20161025, end: 20161028
  8. OXAROL [Concomitant]
     Active Substance: MAXACALCITOL
     Indication: PSORIASIS
     Dosage: 1 G, BID
     Route: 061
     Dates: start: 20150902
  9. COSENTYX [Suspect]
     Active Substance: SECUKINUMAB
     Indication: PSORIATIC ARTHROPATHY
     Dosage: 300 MG, PER APPLICATION
     Route: 058
     Dates: start: 20160706, end: 20161026
  10. ANTEBATE [Concomitant]
     Active Substance: BETAMETHASONE DIPROPIONATE
     Indication: PSORIASIS
     Dosage: 1 G, BID
     Route: 061
     Dates: start: 20150817

REACTIONS (10)
  - Arthralgia [Unknown]
  - Ulcer [Unknown]
  - Rash pustular [Recovering/Resolving]
  - Staphylococcal infection [Unknown]
  - Skin induration [Unknown]
  - Infection [Unknown]
  - Pyoderma gangrenosum [Recovering/Resolving]
  - Psoriatic arthropathy [Unknown]
  - Erythema [Unknown]
  - Scar [Unknown]

NARRATIVE: CASE EVENT DATE: 20160928
